FAERS Safety Report 13608886 (Version 2)
Quarter: 2017Q2

REPORT INFORMATION
  Report Type: Report from Study
  Country: US (occurrence: US)
  Receive Date: 20170602
  Receipt Date: 20170630
  Transmission Date: 20170830
  Serious: Yes (Other)
  Sender: FDA-Public Use
  Company Number: US-SA-2016SA148545

PATIENT
  Age: 56 Year
  Sex: Male

DRUGS (1)
  1. FABRAZYME [Suspect]
     Active Substance: AGALSIDASE BETA
     Indication: FABRY^S DISEASE
     Dosage: FREQUENCY: Q2
     Route: 041
     Dates: start: 20031201

REACTIONS (6)
  - Loss of consciousness [Unknown]
  - Neuralgia [Recovering/Resolving]
  - Deafness [Not Recovered/Not Resolved]
  - Feeling abnormal [Unknown]
  - Infusion site pain [Unknown]
  - Upper respiratory tract congestion [Unknown]
